FAERS Safety Report 12247262 (Version 10)
Quarter: 2016Q2

REPORT INFORMATION
  Report Type: Spontaneous
  Country: US (occurrence: US)
  Receive Date: 20160407
  Receipt Date: 20160614
  Transmission Date: 20160815
  Serious: Yes (Hospitalization)
  Sender: FDA-Public Use
  Company Number: US-SA-2016SA068133

PATIENT
  Age: 58 Year
  Sex: Male

DRUGS (16)
  1. LANTUS SOLOSTAR [Suspect]
     Active Substance: INSULIN GLARGINE
     Dosage: DOSE:28 UNIT(S)
     Route: 058
  2. SOLOSTAR [Concomitant]
     Active Substance: DEVICE
     Dates: start: 20140811, end: 20150513
  3. GLUCAGON. [Concomitant]
     Active Substance: GLUCAGON
     Route: 030
  4. LEVOTHYROXINE. [Concomitant]
     Active Substance: LEVOTHYROXINE
     Route: 048
  5. SOLOSTAR [Concomitant]
     Active Substance: DEVICE
  6. HUMALOG [Concomitant]
     Active Substance: INSULIN LISPRO
     Dates: start: 20150513
  7. SIMVASTATIN. [Concomitant]
     Active Substance: SIMVASTATIN
     Indication: DRUG THERAPY
     Route: 048
     Dates: start: 20140619
  8. SENNA [Concomitant]
     Active Substance: SENNA LEAF\SENNOSIDES\SENNOSIDES A AND B
     Route: 048
  9. CYMBALTA [Concomitant]
     Active Substance: DULOXETINE HYDROCHLORIDE
     Route: 048
  10. LANTUS SOLOSTAR [Suspect]
     Active Substance: INSULIN GLARGINE
     Route: 058
     Dates: start: 20150513
  11. SOLOSTAR [Concomitant]
     Active Substance: DEVICE
     Dates: start: 20150513
  12. ASPIRIN. [Concomitant]
     Active Substance: ASPIRIN
     Indication: PROPHYLAXIS
     Route: 048
     Dates: start: 20110425
  13. COLACE [Concomitant]
     Active Substance: DOCUSATE SODIUM
     Route: 048
  14. LANTUS SOLOSTAR [Suspect]
     Active Substance: INSULIN GLARGINE
     Dosage: DOSE:30 MILLIGRAM(S)/DECILITRE
     Route: 058
     Dates: start: 20140811, end: 20150513
  15. SYNTHROID [Concomitant]
     Active Substance: LEVOTHYROXINE SODIUM
     Indication: DRUG THERAPY
     Route: 048
     Dates: start: 20140619
  16. NOVOLOG [Concomitant]
     Active Substance: INSULIN ASPART
     Indication: DRUG THERAPY
     Dosage: DOSE:180 MILLIGRAM(S)/DECILITRE
     Route: 058
     Dates: start: 20131011, end: 20150513

REACTIONS (10)
  - Clavicle fracture [Recovered/Resolved]
  - Fall [Unknown]
  - Loss of consciousness [Recovered/Resolved]
  - Balance disorder [Recovered/Resolved]
  - Pneumothorax [Recovered/Resolved]
  - Rib fracture [Recovered/Resolved]
  - Hypoglycaemia [Recovered/Resolved]
  - Dizziness [Recovered/Resolved]
  - Pain [Unknown]
  - Traumatic lung injury [Recovering/Resolving]

NARRATIVE: CASE EVENT DATE: 20160311
